FAERS Safety Report 15250789 (Version 4)
Quarter: 2018Q4

REPORT INFORMATION
  Report Type: Spontaneous
  Country: BR (occurrence: BR)
  Receive Date: 20180807
  Receipt Date: 20181213
  Transmission Date: 20190204
  Serious: Yes (Other)
  Sender: FDA-Public Use
  Company Number: PHHY2018BR061950

PATIENT
  Sex: Female
  Weight: 44 kg

DRUGS (3)
  1. LOSARTAN. [Suspect]
     Active Substance: LOSARTAN
     Indication: STENT PLACEMENT
     Dosage: 2 DF, QD
     Route: 048
     Dates: start: 2014
  2. ACETYLSALICYLIC ACID [Concomitant]
     Active Substance: ASPIRIN
     Indication: PRODUCT USED FOR UNKNOWN INDICATION
     Dosage: 1 DF, QD (AFTER LUNCH)
     Route: 065
     Dates: start: 201709
  3. SINVASTACOR [Suspect]
     Active Substance: SIMVASTATIN
     Indication: STENT PLACEMENT
     Dosage: 20 MG, QD (AT NIGHT)
     Route: 048
     Dates: start: 201709

REACTIONS (3)
  - Haemangioma of liver [Recovering/Resolving]
  - Blood cholesterol decreased [Recovering/Resolving]
  - Thrombophlebitis [Recovering/Resolving]

NARRATIVE: CASE EVENT DATE: 2016
